FAERS Safety Report 5757681-X (Version None)
Quarter: 2008Q2

REPORT INFORMATION
  Report Type: 
  Country: None (occurrence: None)
  Receive Date: 20080603
  Receipt Date: 20080526
  Transmission Date: 20081010
  Serious: Yes (Hospitalization)
  Sender: FDA-Public Use
  Company Number: ES-MERCK-0805USA06043

PATIENT
  Age: 83 Year
  Sex: Male

DRUGS (9)
  1. MODURETIC 5-50 [Suspect]
     Route: 048
  2. ADIRO [Concomitant]
     Route: 065
  3. BOI K ASPARTICO [Concomitant]
     Route: 065
  4. PROSCAR [Concomitant]
     Route: 048
  5. SEGURIL [Concomitant]
     Route: 065
  6. SINTROM [Concomitant]
     Route: 065
  7. ZANTAC [Concomitant]
     Route: 065
  8. ALLOPURINOL [Concomitant]
     Route: 065
  9. VASOTEC [Concomitant]
     Route: 048

REACTIONS (2)
  - DEPRESSED LEVEL OF CONSCIOUSNESS [None]
  - HYPONATRAEMIA [None]
